FAERS Safety Report 24453160 (Version 2)
Quarter: 2024Q4

REPORT INFORMATION
  Report Type: Report from Study
  Country: US (occurrence: US)
  Receive Date: 20241017
  Receipt Date: 20241018
  Transmission Date: 20250115
  Serious: No
  Sender: ROCHE
  Company Number: US-ROCHE-3161494

PATIENT
  Age: 12 Year
  Sex: Female
  Weight: 115.0 kg

DRUGS (7)
  1. RITUXAN [Suspect]
     Active Substance: RITUXIMAB
     Indication: Nephritic syndrome
     Dosage: VIAL, DOSE: 10MG
     Route: 042
     Dates: start: 20191011, end: 20221205
  2. RITUXAN [Suspect]
     Active Substance: RITUXIMAB
     Indication: Nephrotic syndrome
     Route: 042
     Dates: start: 20191011, end: 20221205
  3. RITUXAN [Suspect]
     Active Substance: RITUXIMAB
     Indication: Serum sickness
  4. GAZYVA [Suspect]
     Active Substance: OBINUTUZUMAB
     Indication: Nephrotic syndrome
     Dosage: DAY 1 AND DAY 15 EVERY 6 MONTHS
     Route: 042
  5. GAZYVA [Suspect]
     Active Substance: OBINUTUZUMAB
     Indication: Serum sickness
  6. GAZYVA [Suspect]
     Active Substance: OBINUTUZUMAB
     Indication: Nephritic syndrome
  7. PREDNISONE [Concomitant]
     Active Substance: PREDNISONE

REACTIONS (7)
  - Off label use [Unknown]
  - Erythema [Recovered/Resolved]
  - Vomiting projectile [Recovered/Resolved]
  - Mental status changes [Recovered/Resolved]
  - Hypotension [Recovered/Resolved]
  - Pruritus [Recovered/Resolved]
  - Off label use [Unknown]

NARRATIVE: CASE EVENT DATE: 20221205
